FAERS Safety Report 25031804 (Version 1)
Quarter: 2025Q1

REPORT INFORMATION
  Report Type: Report from Study
  Country: US (occurrence: US)
  Receive Date: 20250303
  Receipt Date: 20250303
  Transmission Date: 20250409
  Serious: Yes (Other)
  Sender: ABBVIE
  Company Number: US-ABBVIE-6075458

PATIENT
  Age: 65 Year
  Sex: Female

DRUGS (2)
  1. RINVOQ [Suspect]
     Active Substance: UPADACITINIB
     Indication: Colitis ulcerative
     Route: 048
     Dates: start: 20240710, end: 20250126
  2. RINVOQ [Suspect]
     Active Substance: UPADACITINIB
     Indication: Colitis ulcerative
     Route: 048

REACTIONS (9)
  - Nephrolithiasis [Unknown]
  - Hyperparathyroidism [Unknown]
  - Urinary tract infection [Recovered/Resolved]
  - Hypopituitarism [Unknown]
  - Dermatitis allergic [Not Recovered/Not Resolved]
  - Seasonal allergy [Unknown]
  - Colitis ulcerative [Unknown]
  - Food allergy [Unknown]
  - Urinary tract infection [Recovered/Resolved]

NARRATIVE: CASE EVENT DATE: 20250101
